FAERS Safety Report 5339611-8 (Version None)
Quarter: 2007Q2

REPORT INFORMATION
  Report Type: 
  Country: None (occurrence: None)
  Receive Date: 20070525
  Receipt Date: 20070509
  Transmission Date: 20071010
  Serious: Yes (Hospitalization)
  Sender: FDA-Public Use
  Company Number: 2007SP003575

PATIENT
  Age: 43 Year
  Sex: Male
  Weight: 81.6475 kg

DRUGS (4)
  1. PEG-INTRON [Suspect]
     Indication: HEPATITIS C
     Dosage: SC
     Route: 058
     Dates: start: 20070401, end: 20070501
  2. PEG-INTRON [Suspect]
     Indication: HEPATITIS C
     Dosage: SC
     Route: 058
     Dates: start: 20070126
  3. RIBASPHERE [Suspect]
     Indication: HEPATITIS C
     Dosage: PO
     Route: 048
     Dates: start: 20070401, end: 20070501
  4. RIBASPHERE [Suspect]
     Indication: HEPATITIS C
     Dosage: PO
     Route: 048
     Dates: start: 20070126

REACTIONS (20)
  - ANOREXIA [None]
  - CHEST PAIN [None]
  - DEHYDRATION [None]
  - DEPRESSION [None]
  - DYSPNOEA [None]
  - ECZEMA [None]
  - FATIGUE [None]
  - GASTROENTERITIS VIRAL [None]
  - HAEMORRHAGE [None]
  - HYPERTENSION [None]
  - INJECTION SITE PRURITUS [None]
  - INJECTION SITE RASH [None]
  - INSOMNIA [None]
  - MOOD SWINGS [None]
  - PHARYNGITIS STREPTOCOCCAL [None]
  - SCRATCH [None]
  - SKIN LACERATION [None]
  - SKIN ULCER [None]
  - VIRAL SKIN INFECTION [None]
  - WEIGHT DECREASED [None]
